FAERS Safety Report 9464773 (Version 1)
Quarter: 2013Q3

REPORT INFORMATION
  Report Type: Spontaneous
  Country: CN (occurrence: CN)
  Receive Date: 20130819
  Receipt Date: 20130819
  Transmission Date: 20140515
  Serious: Yes (Hospitalization, Other)
  Sender: FDA-Public Use
  Company Number: PHHY2013CN085948

PATIENT
  Age: 71 Year
  Sex: Female

DRUGS (3)
  1. LESCOL [Suspect]
     Dosage: 1 DF, QN
     Route: 048
     Dates: end: 20130621
  2. METHYCOBAL [Concomitant]
     Dosage: UNK UKN, UNK
     Dates: start: 20130606
  3. ROSUVASTATIN [Concomitant]
     Dosage: UNK UKN, UNK

REACTIONS (14)
  - Liver disorder [Unknown]
  - Abdominal pain upper [Unknown]
  - Nausea [Unknown]
  - Vomiting [Unknown]
  - Decreased appetite [Unknown]
  - Eructation [Unknown]
  - Infrequent bowel movements [Unknown]
  - Dizziness [Unknown]
  - Abdominal pain [Unknown]
  - Hepatic pain [Unknown]
  - Asthenia [Unknown]
  - Abdominal discomfort [Unknown]
  - Tinnitus [Unknown]
  - Blood pressure systolic increased [Unknown]
